FAERS Safety Report 5129666-8 (Version None)
Quarter: 2006Q4

REPORT INFORMATION
  Report Type: 
  Country: None (occurrence: None)
  Receive Date: 20061018
  Receipt Date: 20061013
  Transmission Date: 20070319
  Serious: Yes (Hospitalization)
  Sender: FDA-Public Use
  Company Number: US-GLAXOSMITHKLINE-A0623545A

PATIENT
  Age: 38 Year
  Sex: Female

DRUGS (3)
  1. WELLBUTRIN XL [Suspect]
     Indication: PREMENSTRUAL SYNDROME
     Dosage: 300MG PER DAY
     Route: 048
     Dates: start: 20030401
  2. WARFARIN SODIUM [Concomitant]
  3. BIRTH CONTROL PILL [Concomitant]

REACTIONS (3)
  - CEREBROVASCULAR ACCIDENT [None]
  - PANIC ATTACK [None]
  - THROMBOSIS [None]
